FAERS Safety Report 16056625 (Version 1)
Quarter: 2019Q2

REPORT INFORMATION
  Report Type: Spontaneous
  Country: US (occurrence: US)
  Receive Date: 20190309
  Receipt Date: 20190309
  Transmission Date: 20190711
  Serious: Yes (Disabling, Other)
  Sender: FDA-Public Use
  Company Number: None

PATIENT
  Age: 85 Year
  Sex: Male
  Weight: 72 kg

DRUGS (8)
  1. RIVASTIGMINE TARTRATE 6 MGS [Suspect]
     Active Substance: RIVASTIGMINE TARTRATE
     Indication: DEMENTIA WITH LEWY BODIES
     Dosage: ?          QUANTITY:1 CAPSULE(S);?
     Route: 048
  2. CITICOLINE SODIUM [Concomitant]
     Active Substance: CITICOLINE SODIUM
  3. AMLODIPINE [Concomitant]
     Active Substance: AMLODIPINE BESYLATE
  4. SERTRALINE [Concomitant]
     Active Substance: SERTRALINE HYDROCHLORIDE
  5. MULTIVITAMIN B12 [Concomitant]
  6. OMEGA3-VITAMINE E [Concomitant]
  7. DIAZEPAM. [Concomitant]
     Active Substance: DIAZEPAM
  8. CARBIDOPA-LEVODOPA [Concomitant]
     Active Substance: CARBIDOPA\LEVODOPA

REACTIONS (9)
  - Product substitution issue [None]
  - Cognitive disorder [None]
  - Product quality issue [None]
  - Confusional state [None]
  - Drug ineffective [None]
  - Aphasia [None]
  - Delusion [None]
  - Decreased appetite [None]
  - Parkinsonism [None]

NARRATIVE: CASE EVENT DATE: 20190308
